FAERS Safety Report 10025314 (Version 5)
Quarter: 2015Q3

REPORT INFORMATION
  Report Type: Spontaneous
  Country: US (occurrence: US)
  Receive Date: 20140320
  Receipt Date: 20150702
  Transmission Date: 20151125
  Serious: Yes (Hospitalization, Other)
  Sender: FDA-Public Use
  Company Number: US-GLAXOSMITHKLINE-A1065738A

PATIENT
  Age: 49 Year
  Sex: Female

DRUGS (2)
  1. VENTOLIN [Suspect]
     Active Substance: ALBUTEROL SULFATE
     Indication: CHRONIC OBSTRUCTIVE PULMONARY DISEASE
     Dosage: 90 UG, U
     Dates: start: 20130228
  2. VENTOLIN [Suspect]
     Active Substance: ALBUTEROL SULFATE
     Indication: ASTHMA
     Dosage: 90 UNK, UNK

REACTIONS (10)
  - Hypertension [Unknown]
  - Pneumonia [Recovering/Resolving]
  - Blindness [Unknown]
  - Hospitalisation [Recovered/Resolved]
  - Cardiac disorder [Unknown]
  - Chest pain [Unknown]
  - Lower respiratory tract infection [Unknown]
  - Poisoning [Unknown]
  - Infection [Unknown]
  - Influenza [Unknown]

NARRATIVE: CASE EVENT DATE: 20141221
